FAERS Safety Report 7997829-X (Version None)
Quarter: 2011Q4

REPORT INFORMATION
  Report Type: 
  Country: None (occurrence: None)
  Receive Date: 20111221
  Receipt Date: 20111208
  Transmission Date: 20120403
  Serious: Yes (Other)
  Sender: FDA-Public Use
  Company Number: PHHY2011CA107912

PATIENT
  Sex: Female

DRUGS (2)
  1. FEMARA [Suspect]
     Dates: start: 20110501
  2. XALATAN [Concomitant]
     Indication: GLAUCOMA

REACTIONS (1)
  - INTRAOCULAR PRESSURE INCREASED [None]
